FAERS Safety Report 4687296-6 (Version None)
Quarter: 2005Q2

REPORT INFORMATION
  Report Type: 
  Country: None (occurrence: None)
  Receive Date: 20050608
  Receipt Date: 20050524
  Transmission Date: 20051028
  Serious: Yes (Other)
  Sender: FDA-Public Use
  Company Number: 2005BI000211

PATIENT
  Sex: Female

DRUGS (4)
  1. AVONEX [Suspect]
     Indication: MULTIPLE SCLEROSIS
     Dosage: QW; IM
     Route: 030
     Dates: start: 20020101, end: 20040301
  2. AVONEX [Suspect]
     Indication: MULTIPLE SCLEROSIS
     Dosage: BIW; IM
     Route: 030
     Dates: start: 20040301, end: 20040422
  3. SYNTHROID [Concomitant]
  4. MOTRIN [Concomitant]

REACTIONS (1)
  - AUTOIMMUNE HEPATITIS [None]
